FAERS Safety Report 24782390 (Version 1)
Quarter: 2024Q4

REPORT INFORMATION
  Report Type: Report from Study
  Country: BR (occurrence: BR)
  Receive Date: 20241227
  Receipt Date: 20241227
  Transmission Date: 20250114
  Serious: Yes (Hospitalization)
  Sender: JOHNSON AND JOHNSON
  Company Number: BR-JNJFOC-20241262339

PATIENT
  Age: 17 Year
  Sex: Male
  Weight: 40 kg

DRUGS (1)
  1. REMICADE [Suspect]
     Active Substance: INFLIXIMAB
     Indication: Crohn^s disease
     Route: 041
     Dates: start: 201912

REACTIONS (3)
  - Hospitalisation [Unknown]
  - Weight decreased [Unknown]
  - Herpes zoster [Unknown]

NARRATIVE: CASE EVENT DATE: 20200101
